FAERS Safety Report 5840454-7 (Version None)
Quarter: 2008Q3

REPORT INFORMATION
  Report Type: 
  Country: None (occurrence: None)
  Receive Date: 20080807
  Receipt Date: 20080807
  Transmission Date: 20090109
  Serious: No
  Sender: FDA-Public Use
  Company Number: None

PATIENT
  Sex: Male
  Weight: 108.8633 kg

DRUGS (1)
  1. CIALIS [Suspect]
     Dosage: 1 TABLET AS NEEDED
     Dates: start: 20071220, end: 20080628

REACTIONS (1)
  - TINNITUS [None]
